FAERS Safety Report 17036987 (Version 2)
Quarter: 2019Q4

REPORT INFORMATION
  Report Type: Report from Study
  Country: CA (occurrence: CA)
  Receive Date: 20191115
  Receipt Date: 20191227
  Transmission Date: 20200122
  Serious: Yes (Other)
  Sender: FDA-Public Use
  Company Number: CA-ROCHE-2462399

PATIENT
  Age: 61 Year
  Sex: Male

DRUGS (8)
  1. ACTEMRA [Suspect]
     Active Substance: TOCILIZUMAB
     Indication: RHEUMATOID ARTHRITIS
     Route: 058
     Dates: start: 20161230, end: 2019
  2. METFORMIN [Concomitant]
     Active Substance: METFORMIN HYDROCHLORIDE
     Route: 048
  3. METOPROLOL. [Concomitant]
     Active Substance: METOPROLOL
     Route: 048
  4. ASA [Concomitant]
     Active Substance: ASPIRIN
     Route: 048
  5. INSULIN [Concomitant]
     Active Substance: INSULIN NOS
     Dosage: 15 UNITS/DAY
     Route: 065
  6. METHOTREXATE. [Concomitant]
     Active Substance: METHOTREXATE
  7. ACTEMRA [Suspect]
     Active Substance: TOCILIZUMAB
     Route: 058
     Dates: start: 20161212, end: 2019
  8. XELJANZ [Concomitant]
     Active Substance: TOFACITINIB CITRATE
     Route: 048
     Dates: start: 201906

REACTIONS (3)
  - Therapeutic product effect decreased [Unknown]
  - Renal disorder [Unknown]
  - Coronary arterial stent insertion [Unknown]

NARRATIVE: CASE EVENT DATE: 201806
